FAERS Safety Report 11859803 (Version 2)
Quarter: 2016Q1

REPORT INFORMATION
  Report Type: Spontaneous
  Country: US (occurrence: US)
  Receive Date: 20151222
  Receipt Date: 20160309
  Transmission Date: 20160526
  Serious: Yes (Hospitalization, Disabling)
  Sender: FDA-Public Use
  Company Number: US-ENDO PHARMACEUTICALS INC.-2015-005072

PATIENT
  Age: 35 Year
  Sex: Male
  Weight: 145.28 kg

DRUGS (1)
  1. TESTIM [Suspect]
     Active Substance: TESTOSTERONE
     Indication: ANDROGEN REPLACEMENT THERAPY
     Route: 062
     Dates: start: 201105, end: 201206

REACTIONS (2)
  - Cerebrovascular accident [Not Recovered/Not Resolved]
  - Aortic valve disease [Not Recovered/Not Resolved]

NARRATIVE: CASE EVENT DATE: 20130429
